FAERS Safety Report 9628263 (Version 2)
Quarter: 2013Q4

REPORT INFORMATION
  Report Type: Report from Study
  Country: BE (occurrence: BE)
  Receive Date: 20131017
  Receipt Date: 20131017
  Transmission Date: 20140711
  Serious: Yes (Hospitalization, Disabling)
  Sender: FDA-Public Use
  Company Number: BE-ROCHE-1196574

PATIENT
  Age: 66 Year
  Sex: Female

DRUGS (23)
  1. PERTUZUMAB [Suspect]
     Indication: BREAST CANCER
     Dosage: LOADING DOSE AS PER PROTOCOL
     Route: 042
     Dates: start: 20120706, end: 20120706
  2. PERTUZUMAB [Suspect]
     Dosage: LAST DOSE PRIOR TO SAE ON 04/FEB/2013.?MAINTENANCE DOSE AS PER PROTOCOL. PERMANENTLY DISCONTINUED.
     Route: 042
     Dates: end: 20130225
  3. TRASTUZUMAB [Suspect]
     Indication: BREAST CANCER
     Dosage: LOADING DOSE AS PER PROTOCOL
     Route: 042
     Dates: start: 20120707, end: 20120707
  4. TRASTUZUMAB [Suspect]
     Dosage: LAST DOSE PRIOR TO SAE ON 04/FEB/2013?MAINTENANCE DOSE AS PER PROTOCOL. PERMANENTLY DISCONTINUED.
     Route: 042
     Dates: end: 20130225
  5. PACLITAXEL [Suspect]
     Indication: BREAST CANCER
     Dosage: LAST DOSE PRIOR TO SAE ON 28/JAN/2013
     Route: 042
     Dates: start: 20120706
  6. MOTILIUM (BELGIUM) [Concomitant]
     Route: 065
     Dates: start: 20130216, end: 20130225
  7. PRIMPERAN (BELGIUM) [Concomitant]
     Route: 065
     Dates: start: 20130217, end: 20130225
  8. LITICAN [Concomitant]
     Indication: NAUSEA
     Route: 065
     Dates: start: 20130218, end: 20130225
  9. LITICAN [Concomitant]
     Dosage: 6 AMP/24 HOURS
     Route: 065
     Dates: start: 20130225
  10. LITICAN [Concomitant]
     Route: 065
     Dates: start: 20120706
  11. MEDICA [Concomitant]
     Route: 065
     Dates: start: 20121119, end: 20121126
  12. HEXTRIL [Concomitant]
     Route: 065
     Dates: start: 20121117, end: 20121119
  13. HEXTRIL [Concomitant]
     Route: 065
     Dates: start: 20120720, end: 20120723
  14. BEFACT FORTE [Concomitant]
     Route: 065
     Dates: start: 20120814
  15. RANITIDINE [Concomitant]
     Indication: PROPHYLAXIS AGAINST GASTROINTESTINAL ULCER
     Route: 065
     Dates: start: 20120706
  16. ZOLEDRONATE [Concomitant]
     Indication: METASTASES TO BONE
     Route: 065
     Dates: start: 20120213
  17. DEXAMETHASONE [Concomitant]
     Indication: HYPERSENSITIVITY
     Route: 065
     Dates: start: 20120706
  18. LEVOCETIRIZINE [Concomitant]
     Indication: HYPERSENSITIVITY
     Route: 065
     Dates: start: 20120706
  19. SYSTANE BALANCE [Concomitant]
     Route: 065
     Dates: start: 201107
  20. PARACETAMOL [Concomitant]
     Route: 065
     Dates: start: 20120607
  21. LOPERAMIDE [Concomitant]
     Route: 065
     Dates: start: 20120711
  22. ALPRAZOLAM [Concomitant]
     Route: 065
     Dates: start: 201202
  23. ZOLPIDEM [Concomitant]
     Route: 065
     Dates: start: 201003

REACTIONS (1)
  - Vomiting [Recovered/Resolved]
